FAERS Safety Report 7291086-8 (Version None)
Quarter: 2011Q1

REPORT INFORMATION
  Report Type: 
  Country: None (occurrence: None)
  Receive Date: 20110214
  Receipt Date: 20110209
  Transmission Date: 20110831
  Serious: Yes (Other)
  Sender: FDA-Public Use
  Company Number: GB-TEVA-266814ISR

PATIENT
  Age: 26 Year

DRUGS (1)
  1. FLUOXETINE [Suspect]
     Dates: start: 20090101, end: 20090101

REACTIONS (4)
  - ALOPECIA [None]
  - MICTURITION URGENCY [None]
  - IRITIS [None]
  - POLLAKIURIA [None]
